FAERS Safety Report 5859463-7 (Version None)
Quarter: 2008Q3

REPORT INFORMATION
  Report Type: 
  Country: None (occurrence: None)
  Receive Date: 20080826
  Receipt Date: 20080826
  Transmission Date: 20090109
  Serious: No
  Sender: FDA-Public Use
  Company Number: None

PATIENT
  Age: 9 Year
  Sex: Male
  Weight: 37.7 kg

DRUGS (2)
  1. VYVANSE [Suspect]
     Indication: ATTENTION DEFICIT/HYPERACTIVITY DISORDER
     Dosage: 30MG Q AM PO
     Route: 048
  2. SINGULAIR [Concomitant]

REACTIONS (5)
  - ABNORMAL BEHAVIOUR [None]
  - ANOREXIA [None]
  - FEELING ABNORMAL [None]
  - FORMICATION [None]
  - HALLUCINATION, VISUAL [None]
